FAERS Safety Report 19291742 (Version 2)
Quarter: 2021Q2

REPORT INFORMATION
  Report Type: Spontaneous
  Country: PT (occurrence: PT)
  Receive Date: 20210524
  Receipt Date: 20210618
  Transmission Date: 20210717
  Serious: Yes (Hospitalization, Other)
  Sender: FDA-Public Use
  Company Number: PT-CELLTRION INC.-2021PT006793

PATIENT

DRUGS (1)
  1. INFLIXIMAB (UNKNOWN) [Suspect]
     Active Substance: INFLIXIMAB
     Indication: STILL^S DISEASE
     Dosage: 3 MG/KG (DOSE REDUCED TO 3MG/KG EVERY 9 WEEKS)
     Route: 065
     Dates: start: 2001

REACTIONS (2)
  - Off label use [Unknown]
  - Disseminated tuberculosis [Unknown]

NARRATIVE: CASE EVENT DATE: 201901
